FAERS Safety Report 12356143 (Version 1)
Quarter: 2016Q2

REPORT INFORMATION
  Report Type: Spontaneous
  Country: US (occurrence: US)
  Receive Date: 20160511
  Receipt Date: 20160511
  Transmission Date: 20160815
  Serious: No
  Sender: FDA-Public Use
  Company Number: US-QOL MEDICAL, LLC-1051924

PATIENT
  Age: 8 Year
  Sex: Female
  Weight: 37.27 kg

DRUGS (13)
  1. ERY-TAB [Concomitant]
     Active Substance: ERYTHROMYCIN
  2. BETHANECHOL CHLORIDE. [Concomitant]
     Active Substance: BETHANECHOL CHLORIDE
  3. MELATONIN [Concomitant]
     Active Substance: MELATONIN
  4. AMLODIPINE [Concomitant]
     Active Substance: AMLODIPINE BESYLATE
  5. PREVACID [Concomitant]
     Active Substance: LANSOPRAZOLE
  6. CLORTHALIDONE [Concomitant]
  7. LISINOPRIL. [Concomitant]
     Active Substance: LISINOPRIL
  8. TOPAMAX [Concomitant]
     Active Substance: TOPIRAMATE
  9. HUMATROPE [Concomitant]
     Active Substance: SOMATROPIN
  10. CLONIDINE. [Concomitant]
     Active Substance: CLONIDINE
  11. COQ10 COCKTAIL [Concomitant]
  12. LEVOCARNITINE. [Concomitant]
     Active Substance: LEVOCARNITINE
  13. SUCRAID [Suspect]
     Active Substance: SACROSIDASE
     Indication: SUCRASE-ISOMALTASE DEFICIENCY
     Route: 048
     Dates: start: 20100401

REACTIONS (5)
  - Liquid product physical issue [None]
  - Product quality issue [None]
  - Abdominal pain [Recovered/Resolved]
  - Abdominal distension [Recovered/Resolved]
  - Flatulence [Recovered/Resolved]

NARRATIVE: CASE EVENT DATE: 20151001
